FAERS Safety Report 4818865-8 (Version None)
Quarter: 2005Q4

REPORT INFORMATION
  Report Type: 
  Country: None (occurrence: None)
  Receive Date: 20051101
  Receipt Date: 20051028
  Transmission Date: 20060501
  Serious: Yes (Death, Hospitalization)
  Sender: FDA-Public Use
  Company Number: THQ2005A00924

PATIENT
  Age: 87 Year
  Sex: Female

DRUGS (5)
  1. PIOGLITAZONE HCL [Suspect]
     Indication: DIABETES MELLITUS NON-INSULIN-DEPENDENT
     Dosage: 30 MG (30 MG, 1 IN 1 D)
     Route: 048
     Dates: start: 20050930, end: 20051013
  2. BUMETANIDE [Concomitant]
  3. ESOMEPRAZOLE [Concomitant]
  4. INSULIN MIXTARD (INSULIN INJECTION, ISOPHANE) [Concomitant]
  5. ACIDUM ACETYLSALICYLICUM (ACETYLSALICYLIC ACID) [Concomitant]

REACTIONS (1)
  - ILEUS [None]
